FAERS Safety Report 5110315-X (Version None)
Quarter: 2006Q3

REPORT INFORMATION
  Report Type: 
  Country: None (occurrence: None)
  Receive Date: 20060731
  Receipt Date: 20060626
  Transmission Date: 20061208
  Serious: No
  Sender: FDA-Public Use
  Company Number: 2006PV016408

PATIENT
  Age: 52 Year
  Sex: Male
  Weight: 118.8424 kg

DRUGS (12)
  1. BYETTA [Suspect]
     Indication: DIABETES MELLITUS NON-INSULIN-DEPENDENT
     Dosage: 5 MCG;BID;SC
     Route: 058
     Dates: start: 20060601
  2. OMACOR [Concomitant]
  3. ARTHOLTEC [Concomitant]
  4. TRICOR [Concomitant]
  5. PRANDIN [Concomitant]
  6. METFORMIN HCL [Concomitant]
  7. ZETIA [Concomitant]
  8. PREVACID [Concomitant]
  9. XANAX [Concomitant]
  10. ADVAIR DISKUS 100/50 [Concomitant]
  11. TRANXENE [Concomitant]
  12. ALBUTEROL [Concomitant]

REACTIONS (3)
  - ABDOMINAL PAIN [None]
  - GLYCOSYLATED HAEMOGLOBIN INCREASED [None]
  - HEPATIC ENZYME INCREASED [None]
